FAERS Safety Report 7941694-3 (Version None)
Quarter: 2011Q4

REPORT INFORMATION
  Report Type: 
  Country: None (occurrence: None)
  Receive Date: 20111128
  Receipt Date: 20111128
  Transmission Date: 20120403
  Serious: Yes (Disabling, Other)
  Sender: FDA-Public Use
  Company Number: None

PATIENT
  Age: 38 Year
  Sex: Female
  Weight: 73.481 kg

DRUGS (1)
  1. CYMBALTA [Suspect]
     Indication: DEPRESSION
     Dosage: 60 MG
     Dates: start: 20111104, end: 20111122

REACTIONS (9)
  - PARAESTHESIA [None]
  - FEAR [None]
  - DIZZINESS [None]
  - ANGER [None]
  - SCREAMING [None]
  - ANXIETY [None]
  - MALAISE [None]
  - FATIGUE [None]
  - PANIC REACTION [None]
